FAERS Safety Report 7493720-6 (Version None)
Quarter: 2011Q2

REPORT INFORMATION
  Report Type: 
  Country: None (occurrence: None)
  Receive Date: 20110513
  Receipt Date: 20110504
  Transmission Date: 20111010
  Serious: Yes (Death, Hospitalization)
  Sender: FDA-Public Use
  Company Number: TRP_07711_2011

PATIENT
  Age: 7 Year
  Sex: Male

DRUGS (2)
  1. SODIUM STIBOGLUCONATE (SODIUM STIBOGLUCONATE) [Suspect]
     Indication: VISCERAL LEISHMANIASIS
     Dosage: (20 MG/KG QD INTRAMUSCULAR)
     Route: 030
  2. AMPHOTERICIN B [Suspect]
     Indication: VISCERAL LEISHMANIASIS
     Dosage: (0.25MG/KG OVER 4 HRS INTRAVENOUS (NOT OTHERWISE SPECIFIED), (0.5 MG/KG OVER 4HRS INTRAVNEOUS (NOT O
     Route: 042

REACTIONS (7)
  - ABDOMINAL DISTENSION [None]
  - PALLOR [None]
  - SHOCK [None]
  - PANCYTOPENIA [None]
  - HEPATOSPLENOMEGALY [None]
  - VENTRICULAR TACHYCARDIA [None]
  - PYREXIA [None]
